FAERS Safety Report 4767231-2 (Version None)
Quarter: 2005Q3

REPORT INFORMATION
  Report Type: 
  Country: None (occurrence: None)
  Receive Date: 20050913
  Receipt Date: 20050907
  Transmission Date: 20060218
  Serious: Yes (Death)
  Sender: FDA-Public Use
  Company Number: 200517824GDDC

PATIENT
  Age: 65 Year
  Sex: Female

DRUGS (8)
  1. RIFADIN [Suspect]
     Indication: PULMONARY TUBERCULOSIS
     Route: 048
     Dates: start: 20041201
  2. RIFADIN [Suspect]
     Indication: SPINAL DISORDER
     Route: 048
     Dates: start: 20041201
  3. ISCOTIN [Suspect]
     Indication: PULMONARY TUBERCULOSIS
     Dates: start: 20041201
  4. ISCOTIN [Suspect]
     Indication: SPINAL DISORDER
     Dates: start: 20041201
  5. PYRAMIDE [Suspect]
     Indication: PULMONARY TUBERCULOSIS
     Route: 048
     Dates: start: 20041201
  6. PYRAMIDE [Suspect]
     Indication: SPINAL DISORDER
     Route: 048
     Dates: start: 20041201
  7. ETHAMBUTOL [Suspect]
     Indication: PULMONARY TUBERCULOSIS
     Route: 048
     Dates: start: 20041201
  8. ETHAMBUTOL [Suspect]
     Indication: SPINAL DISORDER
     Route: 048
     Dates: start: 20041201

REACTIONS (8)
  - EOSINOPHIL COUNT INCREASED [None]
  - HEPATIC ATROPHY [None]
  - HEPATIC FAILURE [None]
  - HEPATIC FUNCTION ABNORMAL [None]
  - HEPATITIS [None]
  - LYMPHOCYTE STIMULATION TEST POSITIVE [None]
  - PNEUMONIA [None]
  - RESPIRATORY FAILURE [None]
